FAERS Safety Report 8521637-4 (Version None)
Quarter: 2012Q3

REPORT INFORMATION
  Report Type: 
  Country: None (occurrence: None)
  Receive Date: 20120719
  Receipt Date: 20120716
  Transmission Date: 20120928
  Serious: Yes (Death, Hospitalization)
  Sender: FDA-Public Use
  Company Number: PHHY2012DE047431

PATIENT
  Sex: Male
  Weight: 67 kg

DRUGS (26)
  1. ZOLEDRONOC ACID [Suspect]
     Indication: BONE DISORDER
     Dosage: 4 MG, EVERY 4 WEEKS
     Route: 042
     Dates: start: 20110517, end: 20111114
  2. PREDNISOLONE [Concomitant]
     Dosage: 100 MG, UNK
     Dates: start: 20110901
  3. XIPAMIDE [Concomitant]
     Dosage: 1-0-0
  4. CALCIUM EFFERVESCENT TABLET [Concomitant]
     Dosage: 1-0-1
  5. METOCLOPRAMIDE [Concomitant]
     Indication: NAUSEA
     Dosage: 30 DROPS 1- 1-1
  6. PREDNISOLONE [Concomitant]
     Dosage: 100 MG, UNK
     Dates: end: 20111001
  7. PREDNISOLONE [Concomitant]
     Dosage: 100 MG, UNK
     Dates: end: 20111209
  8. THALIDOMIDE [Concomitant]
     Dates: end: 20111001
  9. ZOFRAN [Concomitant]
  10. MELPHALAN HYDROCHLORIDE [Concomitant]
     Indication: CHEMOTHERAPY
     Dates: start: 20110228
  11. THALIDOMIDE [Concomitant]
  12. PANTOPRAZOLE [Concomitant]
     Dosage: 1-0-0-1
  13. MOVIPREP [Concomitant]
  14. MSI [Concomitant]
     Route: 058
  15. MELPHALAN HYDROCHLORIDE [Concomitant]
  16. PREDNISOLONE [Concomitant]
     Indication: CHEMOTHERAPY
     Dates: start: 20110228
  17. PIPERACILLIN AND TAZOBACTAM [Concomitant]
     Indication: PNEUMONIA
     Dosage: 1-0-1
     Route: 042
  18. LORAZEPAM [Concomitant]
  19. BENDAMUSTINE HYDROCHLORIDE [Concomitant]
     Dosage: 130 MG, UNK
     Dates: start: 20110901, end: 20111209
  20. LEVOTHYROXINE SODIUM [Concomitant]
     Dosage: 1-0-0
  21. DEXAMETHASONE [Concomitant]
     Dosage: 1-1-1
     Route: 042
  22. AMLODIPINE [Concomitant]
     Dosage: 1-0-0
  23. BISOPROLOL FUMARATE [Concomitant]
     Dosage: 1-0-0
  24. BICANORM [Concomitant]
     Dosage: 1-1-1
  25. MELPHALAN HYDROCHLORIDE [Concomitant]
     Dates: end: 20111001
  26. THALIDOMIDE [Concomitant]
     Indication: CHEMOTHERAPY
     Dates: start: 20110228, end: 20111001

REACTIONS (32)
  - VOMITING [None]
  - PNEUMONIA [None]
  - HYPERTENSIVE CARDIOMYOPATHY [None]
  - HYPERTENSION [None]
  - NEOPLASM MALIGNANT [None]
  - CHOLELITHIASIS [None]
  - HYPERTROPHY [None]
  - METABOLIC ACIDOSIS [None]
  - CARDIAC FAILURE [None]
  - MUSCLE ATROPHY [None]
  - NEOPLASM PROGRESSION [None]
  - NAUSEA [None]
  - HYPONATRAEMIA [None]
  - MITRAL VALVE INCOMPETENCE [None]
  - CACHEXIA [None]
  - AORTIC ARTERIOSCLEROSIS [None]
  - LEUKAEMIA PLASMACYTIC [None]
  - ANAEMIA [None]
  - SPLENOMEGALY [None]
  - RENAL CYST [None]
  - ATRIAL FIBRILLATION [None]
  - ASTHENIA [None]
  - EXOPHTHALMOS [None]
  - PROTHROMBIN TIME PROLONGED [None]
  - THROMBOCYTOPENIA [None]
  - RENAL FAILURE ACUTE [None]
  - HYPERVISCOSITY SYNDROME [None]
  - HYPOCALCAEMIA [None]
  - TRICUSPID VALVE INCOMPETENCE [None]
  - PULMONARY HYPERTENSION [None]
  - GALLBLADDER OEDEMA [None]
  - ATRIAL HYPERTROPHY [None]
